FAERS Safety Report 11823499 (Version 5)
Quarter: 2017Q1

REPORT INFORMATION
  Report Type: Spontaneous
  Country: JP (occurrence: JP)
  Receive Date: 20151210
  Receipt Date: 20170330
  Transmission Date: 20170428
  Serious: Yes (Hospitalization)
  Sender: FDA-Public Use
  Company Number: JP-009507513-1504JPN012483

PATIENT
  Age: 79 Year
  Sex: Male
  Weight: 57 kg

DRUGS (7)
  1. MUCOSTA [Concomitant]
     Active Substance: REBAMIPIDE
     Indication: GASTRITIS
     Dosage: 1 DF, TID
     Route: 048
     Dates: start: 20120811, end: 20120908
  2. LOXONIN [Concomitant]
     Active Substance: LOXOPROFEN SODIUM
     Indication: INFECTIVE SPONDYLITIS
     Dosage: 1 DF, TID
     Route: 048
     Dates: start: 20120811, end: 20120908
  3. CRAVIT [Concomitant]
     Active Substance: LEVOFLOXACIN
     Dosage: UNK
     Route: 051
  4. CUBICIN [Suspect]
     Active Substance: DAPTOMYCIN
     Indication: INFECTIVE SPONDYLITIS
     Dosage: 342 MG, QD
     Route: 041
     Dates: start: 20120818, end: 20120908
  5. GENINAX [Concomitant]
     Active Substance: GARENOXACIN MESYLATE
     Indication: INFECTIVE SPONDYLITIS
     Dosage: 2 DF, QD
     Route: 048
     Dates: start: 20120901, end: 20120904
  6. NEO-MINOPHAGEN C [Concomitant]
     Active Substance: AMMONIUM GLYCYRRHIZATE
     Indication: HEPATIC FUNCTION ABNORMAL
     Dosage: 2 DF, QD
     Route: 041
     Dates: start: 20120831, end: 20120904
  7. ISOTONIC SODIUM CHLORIDE SOLUTION KIT H [Concomitant]
     Dosage: 100 ML, QD
     Route: 041
     Dates: start: 20120818, end: 20120908

REACTIONS (2)
  - Pyrexia [Recovered/Resolved]
  - Eosinophilic pneumonia [Recovered/Resolved]

NARRATIVE: CASE EVENT DATE: 20120905
